FAERS Safety Report 5321932-6 (Version None)
Quarter: 2007Q2

REPORT INFORMATION
  Report Type: 
  Country: None (occurrence: None)
  Receive Date: 20070511
  Receipt Date: 20070504
  Transmission Date: 20071010
  Serious: Yes (Other)
  Sender: FDA-Public Use
  Company Number: PHNU2007DE01150

PATIENT
  Age: 75 Year
  Sex: Female

DRUGS (3)
  1. AREDIA [Suspect]
     Dosage: 30 MG, UNK
     Route: 042
  2. AREDIA [Suspect]
     Dosage: 90 MG, UNK
     Route: 042
  3. DIALYSIS [Concomitant]
     Route: 065

REACTIONS (7)
  - BIOPSY SITE UNSPECIFIED ABNORMAL [None]
  - DENTAL TREATMENT [None]
  - NEUROLYSIS SURGICAL [None]
  - OSTEOMYELITIS [None]
  - OSTEONECROSIS [None]
  - SEQUESTRECTOMY [None]
  - TOOTH EXTRACTION [None]
